FAERS Safety Report 5722454-0 (Version None)
Quarter: 2008Q2

REPORT INFORMATION
  Report Type: 
  Country: None (occurrence: None)
  Receive Date: 20080429
  Receipt Date: 20070803
  Transmission Date: 20081010
  Serious: No
  Sender: FDA-Public Use
  Company Number: US-ASTRAZENECA-2007UW18703

PATIENT
  Age: 61 Year
  Sex: Male
  Weight: 81.6 kg

DRUGS (6)
  1. NEXIUM [Suspect]
     Indication: INFLAMMATION
     Route: 048
     Dates: start: 20070701
  2. NEXIUM [Suspect]
     Indication: GASTRITIS
     Route: 048
     Dates: start: 20070701
  3. WELCHOL [Concomitant]
  4. OMACOR [Concomitant]
  5. ZETIA [Concomitant]
  6. COZAAR [Concomitant]

REACTIONS (2)
  - CONSTIPATION [None]
  - FAECES DISCOLOURED [None]
